FAERS Safety Report 23879205 (Version 1)
Quarter: 2024Q2

REPORT INFORMATION
  Report Type: Spontaneous
  Country: US (occurrence: US)
  Receive Date: 20240521
  Receipt Date: 20240521
  Transmission Date: 20240716
  Serious: No
  Sender: FDA-Public Use
  Company Number: US-DENDREON PHARMACEUTICAL LLC-2023DEN000150

PATIENT

DRUGS (6)
  1. PROVENGE [Suspect]
     Active Substance: SIPULEUCEL-T
     Indication: Prostate cancer metastatic
     Dosage: DOSE 1
     Route: 042
     Dates: start: 20230501, end: 20230501
  2. PROVENGE [Suspect]
     Active Substance: SIPULEUCEL-T
     Dosage: DOSE 2
     Route: 042
     Dates: start: 20230515, end: 20230515
  3. TUMS [Concomitant]
     Active Substance: CALCIUM CARBONATE
     Indication: Prophylaxis
     Dosage: 4 DOSAGE FORM, OTHER
     Route: 048
     Dates: start: 20230428, end: 20230428
  4. TUMS [Concomitant]
     Active Substance: CALCIUM CARBONATE
     Dosage: 4 DOSAGE FORM, OTHER
     Route: 048
     Dates: start: 20230512, end: 20230512
  5. TUMS [Concomitant]
     Active Substance: CALCIUM CARBONATE
     Dosage: 4 DOSAGE FORM, OTHER
     Route: 048
     Dates: start: 20230530, end: 20230530
  6. CALCIUM [Concomitant]
     Active Substance: CALCIUM
     Indication: Citrate toxicity
     Dosage: 2 GRAM, SINGLE
     Route: 042
     Dates: start: 20230530, end: 20230530

REACTIONS (1)
  - Citrate toxicity [Recovered/Resolved]

NARRATIVE: CASE EVENT DATE: 20230530
